FAERS Safety Report 10149064 (Version 1)
Quarter: 2014Q2

REPORT INFORMATION
  Report Type: Spontaneous
  Country: US (occurrence: None)
  Receive Date: 20140430
  Receipt Date: 20140430
  Transmission Date: 20141212
  Serious: Yes (Life-Threatening, Hospitalization, Other)
  Sender: FDA-Public Use
  Company Number: 001715729A

PATIENT
  Age: 32 Year
  Sex: Female

DRUGS (4)
  1. PROACTIV + SKIN SMOOTHING EXFOLIATOR [Suspect]
     Indication: ACNE
     Dosage: TWICE DAILY DERMAL
     Route: 023
     Dates: start: 20140303, end: 20140309
  2. PROACTIV + PORE TARGETING TREATMENT [Suspect]
     Indication: ACNE
     Dosage: TWICE DAILY DERMAL
     Dates: start: 20140303, end: 20140309
  3. PROACTIV + COMPLEXION PERFECTING HYDRATOR [Suspect]
     Indication: ACNE
     Dosage: TWICE DAILY DERMAL
     Dates: start: 20140303, end: 20140309
  4. PROACTIV+MARK FADING PADS [Suspect]
     Indication: ACNE
     Dosage: TWICE DAILY DERMAL
     Dates: start: 20140303, end: 20140309

REACTIONS (4)
  - Erythema [None]
  - Eyelid oedema [None]
  - Swelling face [None]
  - Dyspnoea [None]
